FAERS Safety Report 11484605 (Version 1)
Quarter: 2015Q3

REPORT INFORMATION
  Report Type: Spontaneous
  Country: US (occurrence: None)
  Receive Date: 20150909
  Receipt Date: 20150909
  Transmission Date: 20151125
  Serious: No
  Sender: FDA-Public Use
  Company Number: None

PATIENT
  Age: 55 Year
  Sex: Male
  Weight: 87.4 kg

DRUGS (2)
  1. IDARUBICIN [Suspect]
     Active Substance: IDARUBICIN
     Indication: ACUTE KIDNEY INJURY
     Dates: start: 20150825
  2. CYTARABINE. [Suspect]
     Active Substance: CYTARABINE
     Dates: start: 20150826

REACTIONS (4)
  - Blood creatinine increased [None]
  - Blood urea increased [None]
  - Toxicity to various agents [None]
  - Sepsis [None]

NARRATIVE: CASE EVENT DATE: 20150825
